FAERS Safety Report 5937892-0 (Version None)
Quarter: 2008Q4

REPORT INFORMATION
  Report Type: 
  Country: None (occurrence: None)
  Receive Date: 20081031
  Receipt Date: 20081023
  Transmission Date: 20090506
  Serious: Yes (Death)
  Sender: FDA-Public Use
  Company Number: SE-ROCHE-593362

PATIENT
  Age: 67 Year
  Sex: Male

DRUGS (7)
  1. VALCYTE [Suspect]
     Indication: CYTOMEGALOVIRUS INFECTION
     Dosage: DOSING AMOUNT WAS REPORTED AS DOSE 900 MGX2
     Route: 048
     Dates: start: 20080825, end: 20080829
  2. OMEPRAZOLE [Concomitant]
  3. FOLACIN [Concomitant]
  4. KONAKION [Concomitant]
  5. FLAGYL [Concomitant]
  6. SODIUM POLYSTYRENE SULFONATE [Concomitant]
  7. ORALOVITE [Concomitant]

REACTIONS (2)
  - HEPATIC FAILURE [None]
  - RENAL FAILURE [None]
